FAERS Safety Report 23776730 (Version 1)
Quarter: 2024Q2

REPORT INFORMATION
  Report Type: Spontaneous
  Country: GB (occurrence: GB)
  Receive Date: 20240424
  Receipt Date: 20240424
  Transmission Date: 20240716
  Serious: Yes (Other)
  Sender: FDA-Public Use
  Company Number: GB-MHRA-MED-202404081522077840-BQMNP

PATIENT
  Age: 32 Year
  Sex: Female

DRUGS (1)
  1. SUMATRIPTAN [Suspect]
     Active Substance: SUMATRIPTAN
     Indication: Migraine
     Dosage: UNK
     Route: 065

REACTIONS (3)
  - Loss of consciousness [Recovered/Resolved]
  - Paraesthesia [Recovered/Resolved]
  - Migraine [Recovered/Resolved]
